FAERS Safety Report 18663395 (Version 2)
Quarter: 2021Q2

REPORT INFORMATION
  Report Type: Spontaneous
  Country: SE (occurrence: SE)
  Receive Date: 20201224
  Receipt Date: 20210528
  Transmission Date: 20210717
  Serious: Yes (Other)
  Sender: FDA-Public Use
  Company Number: SE-BAUSCH-BL-2020-037618

PATIENT
  Sex: Female

DRUGS (4)
  1. ESCITALOPRAM [Suspect]
     Active Substance: ESCITALOPRAM OXALATE
     Indication: PRODUCT USED FOR UNKNOWN INDICATION
     Dosage: NOT POSSIBLE TO DETERMINE WHETHER THE SUSPECTED DRUGS WERE GIVEN AT SAME TIME OR AT DIFFERENT TIMES.
     Route: 048
  2. MIRTAZAPINE. [Suspect]
     Active Substance: MIRTAZAPINE
     Indication: PRODUCT USED FOR UNKNOWN INDICATION
     Dosage: NOT POSSIBLE TO DETERMINE WHETHER THE SUSPECTED DRUGS WERE GIVEN AT SAME TIME OR AT DIFFERENT TIMES.
     Route: 048
  3. SERTRALINE [Suspect]
     Active Substance: SERTRALINE HYDROCHLORIDE
     Indication: PRODUCT USED FOR UNKNOWN INDICATION
     Dosage: NOT POSSIBLE TO DETERMINE WHETHER THE SUSPECTED DRUGS WERE GIVEN AT SAME TIME OR AT DIFFERENT TIMES.
     Route: 048
  4. VENLAFAXINE [Suspect]
     Active Substance: VENLAFAXINE HYDROCHLORIDE
     Indication: PRODUCT USED FOR UNKNOWN INDICATION
     Dosage: NOT POSSIBLE TO DETERMINE WHETHER THE SUSPECTED DRUGS WERE GIVEN AT SAME TIME OR AT DIFFERENT TIMES.
     Route: 048

REACTIONS (1)
  - Haemorrhagic diathesis [Recovered/Resolved]
